FAERS Safety Report 7798473-X (Version None)
Quarter: 2011Q4

REPORT INFORMATION
  Report Type: 
  Country: None (occurrence: None)
  Receive Date: 20111005
  Receipt Date: 20110930
  Transmission Date: 20120403
  Serious: Yes (Hospitalization, Other)
  Sender: FDA-Public Use
  Company Number: US-AMGEN-USASP2011042956

PATIENT
  Age: 83 Year
  Sex: Female
  Weight: 39.002 kg

DRUGS (3)
  1. PROMACTA [Concomitant]
  2. NPLATE [Suspect]
     Indication: IDIOPATHIC THROMBOCYTOPENIC PURPURA
     Dosage: 200 MUG, QWK
     Route: 058
     Dates: start: 20100105
  3. WELLBUTRIN [Concomitant]
     Dosage: 50 MG, UNK
     Route: 048

REACTIONS (17)
  - ABDOMINAL DISTENSION [None]
  - DECREASED APPETITE [None]
  - DIARRHOEA [None]
  - SUBDURAL HAEMATOMA [None]
  - CONFUSIONAL STATE [None]
  - POOR PERSONAL HYGIENE [None]
  - URINARY TRACT INFECTION [None]
  - FALL [None]
  - HIP FRACTURE [None]
  - FUNCTIONAL GASTROINTESTINAL DISORDER [None]
  - OEDEMA PERIPHERAL [None]
  - WEIGHT DECREASED [None]
  - CONSTIPATION [None]
  - ABDOMINAL TENDERNESS [None]
  - DEHYDRATION [None]
  - ASTHENIA [None]
  - MENTAL STATUS CHANGES [None]
